FAERS Safety Report 7828933-4 (Version None)
Quarter: 2011Q4

REPORT INFORMATION
  Report Type: 
  Country: None (occurrence: None)
  Receive Date: 20111020
  Receipt Date: 20110705
  Transmission Date: 20120403
  Serious: No
  Sender: FDA-Public Use
  Company Number: US-BAYER-2011-060763

PATIENT
  Sex: Male

DRUGS (4)
  1. LEVITRA [Suspect]
     Dosage: 10 MG, ONCE
     Dates: start: 20110705
  2. NEXIUM [Concomitant]
  3. LIPIDIL [Concomitant]
  4. EZETIMIBE [Concomitant]

REACTIONS (5)
  - HEART RATE INCREASED [None]
  - HYPERVENTILATION [None]
  - HEADACHE [None]
  - SEXUAL DYSFUNCTION [None]
  - NAUSEA [None]
